FAERS Safety Report 4901534-3 (Version None)
Quarter: 2006Q1

REPORT INFORMATION
  Report Type: 
  Country: None (occurrence: None)
  Receive Date: 20060206
  Receipt Date: 20050111
  Transmission Date: 20060701
  Serious: Yes (Other)
  Sender: FDA-Public Use
  Company Number: US-BRISTOL-MYERS SQUIBB COMPANY-12820916

PATIENT
  Age: 63 Year

DRUGS (2)
  1. PLATINOL [Suspect]
  2. TAXOL [Suspect]

REACTIONS (1)
  - FULL BLOOD COUNT DECREASED [None]
